FAERS Safety Report 5505124-3 (Version None)
Quarter: 2007Q4

REPORT INFORMATION
  Report Type: 
  Country: None (occurrence: None)
  Receive Date: 20071102
  Receipt Date: 20071024
  Transmission Date: 20080405
  Serious: Yes (Hospitalization)
  Sender: FDA-Public Use
  Company Number: FR-GENENTECH-247562

PATIENT
  Sex: Male

DRUGS (25)
  1. MABTHERA [Suspect]
     Indication: TRANSPLANT
     Dosage: 500 MG, UNK
     Route: 042
     Dates: start: 20070208, end: 20070221
  2. PALIFERMIN [Suspect]
     Indication: DRUG USE FOR UNKNOWN INDICATION
     Dosage: 8 MG, UNK
     Route: 042
     Dates: start: 20070212, end: 20070225
  3. ALKERAN [Suspect]
     Indication: TRANSPLANT
     Dosage: 280 MG, UNK
     Route: 042
     Dates: start: 20070221, end: 20070221
  4. BICNU [Suspect]
     Indication: DRUG USE FOR UNKNOWN INDICATION
     Dosage: 600 MG, UNK
     Route: 042
     Dates: start: 20070216, end: 20070216
  5. CYTARABINE [Suspect]
     Indication: TRANSPLANT
     Dosage: 400 MG, BID
     Route: 042
     Dates: start: 20070217, end: 20070220
  6. ETOPOSIDE [Suspect]
     Indication: TRANSPLANT
     Dosage: 400 MG, QD
     Route: 042
     Dates: start: 20070217, end: 20070220
  7. ZEVALIN [Suspect]
     Indication: TRANSPLANT
     Dosage: 890 MBQ, UNK
     Route: 042
     Dates: start: 20070208, end: 20070208
  8. HEMATOPOETIC PROGENITOR CELLS HUMAN [Concomitant]
     Indication: B-CELL LYMPHOMA
     Dates: start: 20070222
  9. GRANOCYTE [Concomitant]
     Indication: DRUG USE FOR UNKNOWN INDICATION
     Dates: start: 20070223
  10. HEPARIN [Concomitant]
     Indication: DRUG USE FOR UNKNOWN INDICATION
     Dosage: 100 IU/KG, UNK
     Dates: start: 20070216, end: 20070307
  11. ZOFRAN [Concomitant]
     Indication: NAUSEA
     Dosage: 1 VIAL, UNK
  12. EMEND [Concomitant]
     Indication: NAUSEA
     Dosage: 125 MG, UNK
  13. TAZOCILLINE [Concomitant]
     Indication: DRUG USE FOR UNKNOWN INDICATION
     Dates: start: 20070219, end: 20070227
  14. FORTUM [Concomitant]
     Indication: DRUG USE FOR UNKNOWN INDICATION
     Dates: start: 20070227, end: 20070228
  15. CIFLOX [Concomitant]
     Indication: DRUG USE FOR UNKNOWN INDICATION
     Dates: start: 20070219, end: 20070314
  16. FLAGYL [Concomitant]
     Indication: DRUG USE FOR UNKNOWN INDICATION
     Dates: start: 20070222, end: 20070314
  17. VANCOMYCIN HCL [Concomitant]
     Indication: DRUG USE FOR UNKNOWN INDICATION
     Dates: start: 20070225, end: 20070314
  18. TIENAM [Concomitant]
     Indication: DRUG USE FOR UNKNOWN INDICATION
     Dates: start: 20070301, end: 20070314
  19. CASPOFUNGIN [Concomitant]
     Indication: DRUG USE FOR UNKNOWN INDICATION
     Dates: start: 20070308, end: 20070309
  20. VORICONAZOLE [Concomitant]
     Indication: DRUG USE FOR UNKNOWN INDICATION
     Dates: start: 20070309, end: 20070311
  21. AMBISOME [Concomitant]
     Indication: DRUG USE FOR UNKNOWN INDICATION
     Dates: start: 20070312
  22. ZELITREX [Concomitant]
     Indication: DRUG USE FOR UNKNOWN INDICATION
     Dates: start: 20070208, end: 20070221
  23. ZOVIRAX [Concomitant]
     Indication: DRUG USE FOR UNKNOWN INDICATION
     Dates: start: 20070222, end: 20070311
  24. BACTRIM [Concomitant]
     Indication: DRUG USE FOR UNKNOWN INDICATION
  25. AMIKLIN [Concomitant]
     Indication: DRUG USE FOR UNKNOWN INDICATION

REACTIONS (1)
  - PANCYTOPENIA [None]
